FAERS Safety Report 9441880 (Version 1)
Quarter: 2013Q3

REPORT INFORMATION
  Report Type: Spontaneous
  Country: US (occurrence: US)
  Receive Date: 20130806
  Receipt Date: 20130806
  Transmission Date: 20140515
  Serious: Yes (Hospitalization)
  Sender: FDA-Public Use
  Company Number: US-GENZYME-POMP-1003174

PATIENT
  Age: 73 Year
  Sex: Male

DRUGS (1)
  1. LUMIZYME [Suspect]
     Indication: GLYCOGEN STORAGE DISEASE TYPE II
     Dosage: 1700 MG, Q2W
     Route: 042
     Dates: start: 20120712

REACTIONS (1)
  - Carbon dioxide increased [Unknown]
